FAERS Safety Report 17318351 (Version 2)
Quarter: 2020Q1

REPORT INFORMATION
  Report Type: Spontaneous
  Country: US (occurrence: US)
  Receive Date: 20200124
  Receipt Date: 20200128
  Transmission Date: 20200409
  Serious: Yes (Other)
  Sender: FDA-Public Use
  Company Number: US-ASTRAZENECA-2020SE10356

PATIENT
  Age: 472 Month
  Sex: Female
  Weight: 56.7 kg

DRUGS (3)
  1. SEROQUEL [Suspect]
     Active Substance: QUETIAPINE FUMARATE
     Indication: BIPOLAR DISORDER
     Dosage: 25.0MG AS REQUIRED
     Route: 048
  2. SEROQUEL [Suspect]
     Active Substance: QUETIAPINE FUMARATE
     Indication: BIPOLAR DISORDER
     Route: 048
  3. SEROQUEL [Suspect]
     Active Substance: QUETIAPINE FUMARATE
     Indication: BIPOLAR DISORDER
     Route: 048

REACTIONS (14)
  - Tremor [Not Recovered/Not Resolved]
  - Memory impairment [Not Recovered/Not Resolved]
  - Dysphagia [Recovering/Resolving]
  - Catatonia [Recovered/Resolved]
  - Sedation [Recovering/Resolving]
  - Disturbance in attention [Not Recovered/Not Resolved]
  - Depression [Recovering/Resolving]
  - Suspected counterfeit product [Unknown]
  - Off label use [Unknown]
  - Product use issue [Not Recovered/Not Resolved]
  - Suicidal ideation [Recovered/Resolved]
  - Dry mouth [Recovering/Resolving]
  - Insomnia [Recovered/Resolved]
  - Feeling abnormal [Not Recovered/Not Resolved]

NARRATIVE: CASE EVENT DATE: 201912
